FAERS Safety Report 14188304 (Version 1)
Quarter: 2017Q4

REPORT INFORMATION
  Report Type: Spontaneous
  Country: US (occurrence: US)
  Receive Date: 20171114
  Receipt Date: 20171114
  Transmission Date: 20180321
  Serious: No
  Sender: FDA-Public Use
  Company Number: US-OSMOTICA_PHARMACEUTICAL_US_LLC-POI0573201700060

PATIENT
  Age: 50 Year
  Sex: Female

DRUGS (1)
  1. METHYLPHENIDATE HYDROCHLORIDE EXTENDED-RELEASE TABLETSMETHYLPHENIDATE HYDROCHLORIDE [Suspect]
     Active Substance: METHYLPHENIDATE HYDROCHLORIDE
     Indication: CRANIOCEREBRAL INJURY
     Dates: start: 20171003

REACTIONS (3)
  - Mental status changes [None]
  - Abnormal behaviour [Unknown]
  - Mental disorder [None]

NARRATIVE: CASE EVENT DATE: 20171010
